FAERS Safety Report 26082668 (Version 1)
Quarter: 2025Q4

REPORT INFORMATION
  Report Type: Spontaneous
  Country: US (occurrence: None)
  Receive Date: 20251121
  Receipt Date: 20251121
  Transmission Date: 20260117
  Serious: Yes (Hospitalization, Other)
  Sender: FDA-CTU
  Company Number: None

PATIENT
  Age: 66 Year
  Sex: Male

DRUGS (1)
  1. POMALYST [Suspect]
     Active Substance: POMALIDOMIDE
     Indication: Plasma cell myeloma
     Dosage: 4MG QD ORAL ?
     Route: 048
     Dates: start: 20250912

REACTIONS (3)
  - Pneumonia [None]
  - Sepsis [None]
  - Therapy interrupted [None]

NARRATIVE: CASE EVENT DATE: 20251028
